FAERS Safety Report 20830547 (Version 1)
Quarter: 2022Q2

REPORT INFORMATION
  Report Type: Report from Study
  Country: US (occurrence: US)
  Receive Date: 20220514
  Receipt Date: 20220514
  Transmission Date: 20220720
  Serious: No
  Sender: FDA-Public Use
  Company Number: US-BRISTOL-MYERS SQUIBB COMPANY-2022-019432

PATIENT
  Age: 32 Year
  Sex: Male

DRUGS (1)
  1. ZEPOSIA [Suspect]
     Active Substance: OZANIMOD HYDROCHLORIDE
     Indication: Multiple sclerosis
     Dosage: DOSE: 0.92 MILLIGRAM, FREQ: ONCE DAILY
     Route: 048
     Dates: start: 20210625

REACTIONS (2)
  - Asthenia [Recovered/Resolved]
  - Feeling abnormal [Recovered/Resolved]
